FAERS Safety Report 5115412-0 (Version None)
Quarter: 2006Q3

REPORT INFORMATION
  Report Type: 
  Country: None (occurrence: None)
  Receive Date: 20060922
  Receipt Date: 20060911
  Transmission Date: 20061208
  Serious: Yes (Hospitalization)
  Sender: FDA-Public Use
  Company Number: 230565K06CAN

PATIENT
  Age: 28 Year
  Sex: Female
  Weight: 63.8 kg

DRUGS (3)
  1. REBIF [Suspect]
     Indication: RELAPSING-REMITTING MULTIPLE SCLEROSIS
     Dosage: SEE IMAGE
     Route: 058
     Dates: start: 19990701, end: 20040409
  2. REBIF [Suspect]
     Indication: RELAPSING-REMITTING MULTIPLE SCLEROSIS
     Dosage: SEE IMAGE
     Route: 058
     Dates: start: 20040412, end: 20050708
  3. OXYBUTYNIN [Concomitant]

REACTIONS (2)
  - ASTROCYTOMA [None]
  - MULTIPLE SCLEROSIS RELAPSE [None]
